FAERS Safety Report 16075599 (Version 1)
Quarter: 2019Q1

REPORT INFORMATION
  Report Type: Spontaneous
  Country: US (occurrence: US)
  Receive Date: 20190315
  Receipt Date: 20190315
  Transmission Date: 20190418
  Serious: No
  Sender: FDA-Public Use
  Company Number: US-ASTRAZENECA-2019SE27230

PATIENT
  Sex: Female
  Weight: 98 kg

DRUGS (1)
  1. BYDUREON [Suspect]
     Active Substance: EXENATIDE
     Indication: DIABETES MELLITUS
     Route: 058
     Dates: start: 201807

REACTIONS (4)
  - Wrong technique in device usage process [Unknown]
  - Skin disorder [Not Recovered/Not Resolved]
  - Device malfunction [Unknown]
  - Intentional device misuse [Unknown]
